FAERS Safety Report 6917367-2 (Version None)
Quarter: 2010Q3

REPORT INFORMATION
  Report Type: 
  Country: None (occurrence: None)
  Receive Date: 20100810
  Receipt Date: 20100806
  Transmission Date: 20110219
  Serious: Yes (Life-Threatening)
  Sender: FDA-Public Use
  Company Number: ES-ASTRAZENECA-2010SE36848

PATIENT
  Age: 56 Year
  Sex: Male

DRUGS (2)
  1. BUPIVACAINE HCL [Suspect]
     Indication: NERVE BLOCK
     Route: 053
  2. BUPIVACAINE HCL [Suspect]
     Dosage: SKIN INFILTRATION

REACTIONS (1)
  - HYPERSENSITIVITY [None]
